FAERS Safety Report 17601794 (Version 1)
Quarter: 2020Q1

REPORT INFORMATION
  Report Type: Spontaneous
  Country: US (occurrence: US)
  Receive Date: 20200331
  Receipt Date: 20200331
  Transmission Date: 20200409
  Serious: No
  Sender: FDA-Public Use
  Company Number: US-BRISTOL-MYERS SQUIBB COMPANY-BMS-2020-025917

PATIENT
  Age: 75 Year
  Sex: Female
  Weight: 56.69 kg

DRUGS (5)
  1. ROSUVASTATIN. [Concomitant]
     Active Substance: ROSUVASTATIN
     Indication: PRODUCT USED FOR UNKNOWN INDICATION
     Dosage: 10 MILLIGRAM
     Route: 065
  2. ELIQUIS [Suspect]
     Active Substance: APIXABAN
     Indication: DYSPNOEA
     Dosage: 5 MILLIGRAM, BID
     Route: 048
     Dates: start: 20200302
  3. METOPROLOL. [Concomitant]
     Active Substance: METOPROLOL
     Indication: PRODUCT USED FOR UNKNOWN INDICATION
     Dosage: 25 MILLIGRAM IN THE MORNING
     Route: 065
  4. DILTIAZEM. [Concomitant]
     Active Substance: DILTIAZEM
     Indication: PRODUCT USED FOR UNKNOWN INDICATION
     Dosage: 180 MILLIGRAM
     Route: 065
  5. ELIQUIS [Suspect]
     Active Substance: APIXABAN
     Indication: HEART RATE
     Route: 065

REACTIONS (2)
  - Intentional product use issue [Unknown]
  - Epistaxis [Unknown]

NARRATIVE: CASE EVENT DATE: 20200302
